FAERS Safety Report 24289189 (Version 4)
Quarter: 2024Q3

REPORT INFORMATION
  Report Type: Spontaneous
  Country: BR (occurrence: BR)
  Receive Date: 20240906
  Receipt Date: 20240927
  Transmission Date: 20241016
  Serious: Yes (Other)
  Sender: CELLTRION
  Company Number: BR-CELLTRION INC.-2023BR003739

PATIENT

DRUGS (7)
  1. INFLIXIMAB [Suspect]
     Active Substance: INFLIXIMAB
     Indication: Rheumatoid arthritis
     Dosage: USES 2 AMPOULES OF 100 MG EACH (200 MG TOTAL) EVERY 2 MONTHS
     Route: 042
     Dates: start: 20221215
  2. INFLIXIMAB [Suspect]
     Active Substance: INFLIXIMAB
     Dosage: USES 2 AMPOULES OF 100 MG EACH (200 MG TOTAL) EVERY 2 MONTHS
     Route: 042
     Dates: start: 20230420
  3. INFLIXIMAB [Suspect]
     Active Substance: INFLIXIMAB
     Dosage: USES 2 AMPOULES OF 100 MG EACH (200 MG TOTAL) EVERY 2 MONTHS
     Route: 042
     Dates: start: 20230802
  4. INFLIXIMAB [Suspect]
     Active Substance: INFLIXIMAB
     Dosage: USES 2 AMPOULES OF 100 MG EACH (200 MG TOTAL) EVERY 2 MONTHS
     Route: 042
     Dates: start: 20230830
  5. LEFLUNOMIDE [Concomitant]
     Active Substance: LEFLUNOMIDE
     Indication: Rheumatoid arthritis
     Dosage: 1 TABLET A DAY
  6. LEFLUNOMIDE [Concomitant]
     Active Substance: LEFLUNOMIDE
     Indication: Product used for unknown indication
  7. BROMOPRIDE [Concomitant]
     Active Substance: BROMOPRIDE
     Indication: Oesophagitis
     Dosage: 1 PILL A DAY

REACTIONS (11)
  - Rheumatoid arthritis [Unknown]
  - Pulpitis dental [Unknown]
  - Unevaluable event [Unknown]
  - Malaise [Unknown]
  - Influenza [Recovered/Resolved]
  - Hypertension [Unknown]
  - Sinusitis [Unknown]
  - Rhinitis [Unknown]
  - Intentional dose omission [Unknown]
  - Therapeutic response shortened [Unknown]
  - Underdose [Unknown]

NARRATIVE: CASE EVENT DATE: 20230912
